FAERS Safety Report 20124783 (Version 1)
Quarter: 2021Q4

REPORT INFORMATION
  Report Type: Spontaneous
  Country: US (occurrence: US)
  Receive Date: 20211129
  Receipt Date: 20211129
  Transmission Date: 20220303
  Serious: No
  Sender: FDA-Public Use
  Company Number: US-MICRO LABS LIMITED-ML2021-02395

PATIENT
  Age: 31 Year
  Sex: Male
  Weight: 78.088 kg

DRUGS (2)
  1. AMOXICILLIN\CLAVULANATE POTASSIUM [Suspect]
     Active Substance: AMOXICILLIN\CLAVULANATE POTASSIUM
     Indication: Streptococcal infection
     Dosage: FORM STRENGTH: 875 MG/125 MG;  DOSE: 1 TABLET BY MOUTH, 2 TIMES DAILY;
     Route: 048
     Dates: start: 20210904, end: 20210907
  2. OFLOXACIN [Concomitant]
     Active Substance: OFLOXACIN

REACTIONS (4)
  - Insomnia [Not Recovered/Not Resolved]
  - Urticaria [Not Recovered/Not Resolved]
  - Pruritus [Not Recovered/Not Resolved]
  - Erythema [Not Recovered/Not Resolved]

NARRATIVE: CASE EVENT DATE: 20210907
